FAERS Safety Report 9990980 (Version 1)
Quarter: 2014Q1

REPORT INFORMATION
  Report Type: Report from Study
  Country: US (occurrence: US)
  Receive Date: 20140310
  Receipt Date: 20140310
  Transmission Date: 20141002
  Serious: No
  Sender: FDA-Public Use
  Company Number: US-ABBVIE-13P-163-1135267-00

PATIENT
  Age: 76 Year
  Sex: Female

DRUGS (14)
  1. HUMIRA [Suspect]
     Indication: RHEUMATOID ARTHRITIS
     Dosage: 40MG INITIAL DOSE
     Dates: start: 20130812
  2. AZOR [Concomitant]
     Indication: PRODUCT USED FOR UNKNOWN INDICATION
     Dosage: 10-40MG DAILY
  3. HYDRALAZINE [Concomitant]
     Indication: HYPERTENSION
     Dosage: 10MG 4 DAILY
  4. CLONIDINE [Concomitant]
     Indication: HYPERTENSION
     Dosage: 0.1MG DAILY
  5. PLAQUENIL [Concomitant]
     Indication: RHEUMATOID ARTHRITIS
  6. PRAVASTATIN [Concomitant]
     Indication: PROPHYLAXIS
     Dosage: 40MG DAILY
  7. TEMAZEPAM [Concomitant]
     Indication: INSOMNIA
     Dosage: EVERY NIGHT
  8. CITALOPRAM [Concomitant]
     Indication: DEPRESSION
     Dosage: 20MG DAILY
  9. ASPIRIN [Concomitant]
     Indication: PRODUCT USED FOR UNKNOWN INDICATION
     Dosage: 2 DAILY
  10. TRAMADOL [Concomitant]
     Indication: PAIN
  11. ACIPHEX [Concomitant]
     Indication: PRODUCT USED FOR UNKNOWN INDICATION
     Dosage: 20MG 2 DAILY
  12. MULTIVITAMIN SILVER [Concomitant]
     Indication: PRODUCT USED FOR UNKNOWN INDICATION
  13. CALCIUM CITRATE [Concomitant]
     Indication: PRODUCT USED FOR UNKNOWN INDICATION
  14. MIRALAX [Concomitant]
     Indication: PRODUCT USED FOR UNKNOWN INDICATION

REACTIONS (1)
  - Arthritis [Not Recovered/Not Resolved]
